FAERS Safety Report 18467980 (Version 2)
Quarter: 2021Q1

REPORT INFORMATION
  Report Type: Spontaneous
  Country: US (occurrence: US)
  Receive Date: 20201105
  Receipt Date: 20210222
  Transmission Date: 20210419
  Serious: No
  Sender: FDA-Public Use
  Company Number: US-PFIZER INC-2020281185

PATIENT
  Age: 62 Year
  Sex: Male

DRUGS (2)
  1. PREDNISONE. [Suspect]
     Active Substance: PREDNISONE
     Dosage: 5 MG
  2. XELJANZ XR [Suspect]
     Active Substance: TOFACITINIB CITRATE
     Indication: RHEUMATOID ARTHRITIS
     Dosage: 11 MG, 1X/DAY
     Route: 048
     Dates: start: 20200717

REACTIONS (7)
  - Sleep disorder [Unknown]
  - Pain in extremity [Unknown]
  - Product dose omission issue [Unknown]
  - Condition aggravated [Unknown]
  - Arthralgia [Unknown]
  - Back pain [Unknown]
  - Pain [Unknown]
